FAERS Safety Report 8112448-2 (Version None)
Quarter: 2012Q1

REPORT INFORMATION
  Report Type: 
  Country: None (occurrence: None)
  Receive Date: 20120203
  Receipt Date: 20120127
  Transmission Date: 20120608
  Serious: No
  Sender: FDA-Public Use
  Company Number: US-B.I. PHARMACEUTICALS,INC./RIDGEFIELD-2012-BP-01750BP

PATIENT
  Sex: Female

DRUGS (10)
  1. HYDROCHLOROTHIAZIDE [Concomitant]
     Indication: ATRIAL FIBRILLATION
     Dosage: 25 MG
     Route: 048
     Dates: start: 20080101
  2. SPIRIVA [Suspect]
     Indication: CHRONIC OBSTRUCTIVE PULMONARY DISEASE
     Dosage: 18 MCG
     Route: 055
     Dates: start: 20090101
  3. DIGOXIN [Concomitant]
     Indication: ATRIAL FIBRILLATION
     Dosage: 0.25 MG
     Route: 048
     Dates: start: 20080101
  4. AMBIEN [Concomitant]
     Indication: INSOMNIA
     Route: 048
     Dates: start: 20100101
  5. VENLAFAXINE [Concomitant]
     Indication: DEPRESSION
     Dosage: 75 MG
     Route: 048
     Dates: start: 20110101
  6. LISINOPRIL [Concomitant]
     Indication: HYPERTENSION
     Dosage: 20 MG
     Route: 048
     Dates: start: 20080101
  7. WARFARIN SODIUM [Concomitant]
     Indication: ATRIAL FIBRILLATION
     Dosage: 5 MG
     Route: 048
     Dates: start: 20080101
  8. SYNTHROID [Concomitant]
     Indication: THYROID OPERATION
     Dosage: 137 MCG
     Route: 048
     Dates: start: 20090101
  9. DILTIAZEM HCL [Concomitant]
     Indication: ATRIAL FIBRILLATION
     Dosage: 360 MG
     Route: 048
     Dates: start: 20090101
  10. WARFARIN SODIUM [Concomitant]
     Dosage: 2.5 MG
     Route: 048
     Dates: start: 20090101

REACTIONS (1)
  - DRUG INEFFECTIVE [None]
